FAERS Safety Report 7979514-3 (Version None)
Quarter: 2011Q4

REPORT INFORMATION
  Report Type: 
  Country: None (occurrence: None)
  Receive Date: 20111214
  Receipt Date: 20111202
  Transmission Date: 20120403
  Serious: Yes (Other)
  Sender: FDA-Public Use
  Company Number: PHEH2011US08260

PATIENT
  Sex: Female

DRUGS (7)
  1. EXELON [Suspect]
     Dosage: 4.6 MG, UNK
     Route: 062
  2. METOPROLOL TARTRATE [Concomitant]
     Dosage: UNK UKN, UNK
  3. EXELON [Suspect]
  4. EXELON [Suspect]
     Dosage: 9.5 MG\24 HRS
     Route: 062
  5. EXELON [Suspect]
     Dosage: 4.6 MG, UNK
     Route: 062
  6. DIOVAN [Concomitant]
     Dosage: UNK UKN, UNK
  7. CRESTOR [Concomitant]
     Dosage: UNK UKN, UNK

REACTIONS (6)
  - LOOSE ASSOCIATIONS [None]
  - DRUG HYPERSENSITIVITY [None]
  - DRUG INTOLERANCE [None]
  - PAIN [None]
  - LOSS OF CONSCIOUSNESS [None]
  - MALAISE [None]
